FAERS Safety Report 10048813 (Version 1)
Quarter: 2014Q1

REPORT INFORMATION
  Report Type: Spontaneous
  Country: SE (occurrence: SE)
  Receive Date: 20140331
  Receipt Date: 20140331
  Transmission Date: 20141002
  Serious: Yes (Hospitalization, Other)
  Sender: FDA-Public Use
  Company Number: SE-WATSON-2013-24988

PATIENT
  Age: 72 Year
  Sex: Male

DRUGS (3)
  1. LOSARTAN [Suspect]
     Indication: HYPERTONIA
     Route: 048
     Dates: start: 20130614, end: 20130616
  2. LAMOTRIGINE (UNKNOWN) [Suspect]
     Indication: EPILEPSY
     Route: 048
  3. KEPPRA [Concomitant]
     Indication: PRODUCT USED FOR UNKNOWN INDICATION
     Route: 065

REACTIONS (2)
  - Drug interaction [Recovered/Resolved]
  - Convulsion [Recovered/Resolved]
